FAERS Safety Report 4720754-4 (Version None)
Quarter: 2005Q3

REPORT INFORMATION
  Report Type: 
  Country: None (occurrence: None)
  Receive Date: 20050719
  Receipt Date: 20050701
  Transmission Date: 20060218
  Serious: Yes (Death, Other)
  Sender: FDA-Public Use
  Company Number: USA0507101946

PATIENT
  Age: 28 Year
  Sex: Female

DRUGS (5)
  1. ZYPREXA [Suspect]
     Indication: BIPOLAR I DISORDER
     Dosage: 20 MG/1 DAY
     Dates: start: 20050215
  2. LITHIUM [Concomitant]
  3. PROZAC [Concomitant]
  4. TRAZADONE (TRAZODONE) [Concomitant]
  5. METFORMIN [Concomitant]

REACTIONS (5)
  - BEDRIDDEN [None]
  - CONDITION AGGRAVATED [None]
  - DEPRESSION [None]
  - OBESITY [None]
  - PULMONARY THROMBOSIS [None]
